FAERS Safety Report 7295733-6 (Version None)
Quarter: 2011Q1

REPORT INFORMATION
  Report Type: 
  Country: None (occurrence: None)
  Receive Date: 20110207
  Receipt Date: 20110122
  Transmission Date: 20110831
  Serious: Yes (Death, Hospitalization)
  Sender: FDA-Public Use
  Company Number: 2011AP000110

PATIENT
  Age: 52 Year
  Sex: Male

DRUGS (2)
  1. CLARITHROMYCIN [Suspect]
     Indication: TOOTH ABSCESS
     Dosage: 500 MG;Q12H
  2. COLCHICINE [Suspect]
     Indication: HYPERURICAEMIA
     Dosage: 1 MG;QD ; 12 MG;QD

REACTIONS (15)
  - DRUG INTERACTION [None]
  - HYPOKALAEMIA [None]
  - VOMITING [None]
  - MULTI-ORGAN FAILURE [None]
  - HEPATITIS TOXIC [None]
  - HAEMODYNAMIC INSTABILITY [None]
  - LACTIC ACIDOSIS [None]
  - ACUTE RESPIRATORY DISTRESS SYNDROME [None]
  - THROMBOCYTOPENIA [None]
  - RENAL FAILURE [None]
  - ABDOMINAL PAIN [None]
  - NEUTROPENIA [None]
  - DIARRHOEA [None]
  - SEPTIC SHOCK [None]
  - TOXICITY TO VARIOUS AGENTS [None]
